FAERS Safety Report 25187234 (Version 1)
Quarter: 2025Q2

REPORT INFORMATION
  Report Type: Report from Study
  Country: US (occurrence: US)
  Receive Date: 20250411
  Receipt Date: 20250411
  Transmission Date: 20250716
  Serious: Yes (Other)
  Sender: JAZZ
  Company Number: US-JAZZ PHARMACEUTICALS-2025-US-009161

PATIENT
  Sex: Male

DRUGS (1)
  1. EPIDIOLEX [Suspect]
     Active Substance: CANNABIDIOL
     Indication: Lennox-Gastaut syndrome
     Dosage: 1.6 MILLILITER, BID
     Route: 048
     Dates: start: 202502

REACTIONS (5)
  - Hallucination [Unknown]
  - Staring [Unknown]
  - Tic [Unknown]
  - Fatigue [Unknown]
  - Decreased appetite [Unknown]
